FAERS Safety Report 8763933 (Version 2)
Quarter: 2012Q4

REPORT INFORMATION
  Report Type: 
  Country: DE (occurrence: DE)
  Receive Date: 20120831
  Receipt Date: 20121102
  Transmission Date: 20130627
  Serious: Yes (Other)
  Sender: FDA-Public Use
  Company Number: DE-SANOFI-AVENTIS-2012SA060536

PATIENT
  Age: 48 Year
  Sex: Male
  Weight: 68 kg

DRUGS (2)
  1. ARAVA [Suspect]
     Indication: DRUG USE FOR UNKNOWN INDICATION
     Route: 048
     Dates: start: 20120804
  2. METHOTREXAT [Interacting]
     Indication: DRUG USE FOR UNKNOWN INDICATION
     Route: 048
     Dates: start: 20120328, end: 20120825

REACTIONS (4)
  - Alanine aminotransferase increased [Recovered/Resolved]
  - Drug interaction [Recovered/Resolved]
  - Aspartate aminotransferase increased [None]
  - Blood bilirubin increased [None]
